FAERS Safety Report 10011754 (Version 1)
Quarter: 2014Q1

REPORT INFORMATION
  Report Type: Spontaneous
  Country: GB (occurrence: GB)
  Receive Date: 20140314
  Receipt Date: 20140314
  Transmission Date: 20141002
  Serious: Yes (Disabling)
  Sender: FDA-Public Use
  Company Number: GB-TEVA-468078ISR

PATIENT
  Age: 55 Year
  Sex: Female

DRUGS (2)
  1. AZILECT [Suspect]
     Indication: PARKINSON^S DISEASE
     Route: 065
  2. LEVODOPA [Suspect]
     Indication: PARKINSON^S DISEASE
     Route: 065

REACTIONS (7)
  - Tremor [Recovering/Resolving]
  - Hypokinesia [Recovering/Resolving]
  - Dyspnoea [Recovering/Resolving]
  - Hyperhidrosis [Recovering/Resolving]
  - Feeling abnormal [Recovering/Resolving]
  - Tachypnoea [Recovering/Resolving]
  - Activities of daily living impaired [Recovering/Resolving]
